FAERS Safety Report 6317432-7 (Version None)
Quarter: 2009Q3

REPORT INFORMATION
  Report Type: 
  Country: None (occurrence: None)
  Receive Date: 20090820
  Receipt Date: 20090820
  Transmission Date: 20100115
  Serious: No
  Sender: FDA-Public Use
  Company Number: None

PATIENT
  Age: 75 Year
  Sex: Male
  Weight: 86.1834 kg

DRUGS (1)
  1. TRIAMTERENE AND HYDROCHLOROTHIAZIDE [Suspect]
     Indication: HYPERTENSION
     Dosage: ONE TABLET DAILY
     Dates: start: 19900601, end: 20090812

REACTIONS (3)
  - NO THERAPEUTIC RESPONSE [None]
  - RASH ERYTHEMATOUS [None]
  - RASH PRURITIC [None]
